FAERS Safety Report 12861558 (Version 4)
Quarter: 2017Q1

REPORT INFORMATION
  Report Type: Spontaneous
  Country: US (occurrence: US)
  Receive Date: 20161019
  Receipt Date: 20170104
  Transmission Date: 20170428
  Serious: Yes (Other)
  Sender: FDA-Public Use
  Company Number: US-PFIZER INC-2016487604

PATIENT
  Age: 66 Year
  Sex: Female
  Weight: 103.5 kg

DRUGS (7)
  1. ENBREL [Concomitant]
     Active Substance: ETANERCEPT
     Dosage: 1 ML, WEEKLY (50 MG/0.05 ML )
     Route: 058
  2. LEVOTHYROXINE. [Concomitant]
     Active Substance: LEVOTHYROXINE
     Dosage: 25 UG, DAILY
     Route: 048
  3. AMLODIPINE [Concomitant]
     Active Substance: AMLODIPINE BESYLATE
     Dosage: 2.5 MG, DAILY
     Route: 048
  4. FAMOTIDINE. [Concomitant]
     Active Substance: FAMOTIDINE
     Dosage: 20 MG, 2X/DAY (EVERY 12 HOURS  )
     Route: 048
  5. LYRICA [Suspect]
     Active Substance: PREGABALIN
     Indication: MERALGIA PARAESTHETICA
     Dosage: 150 MG, 1X/DAY (EVERY BEDTIME)
     Route: 048
  6. HYDROCHLOROTHIAZIDE. [Concomitant]
     Active Substance: HYDROCHLOROTHIAZIDE
     Dosage: 12.5 MG, DAILY
     Route: 048
  7. LYRICA [Suspect]
     Active Substance: PREGABALIN
     Indication: FIBROMYALGIA
     Dosage: 150 MG, 2X/DAY
     Route: 048
     Dates: start: 20160629

REACTIONS (10)
  - Intentional product use issue [Unknown]
  - Fatigue [Unknown]
  - Drug effect incomplete [Unknown]
  - Arthritis [Recovered/Resolved]
  - Oedema [Unknown]
  - Insomnia [Unknown]
  - Diverticulitis [Unknown]
  - Weight increased [Unknown]
  - Discomfort [Unknown]
  - Malaise [Unknown]

NARRATIVE: CASE EVENT DATE: 201608
